FAERS Safety Report 19010882 (Version 3)
Quarter: 2022Q1

REPORT INFORMATION
  Report Type: Spontaneous
  Country: PL (occurrence: PL)
  Receive Date: 20210316
  Receipt Date: 20220218
  Transmission Date: 20220423
  Serious: Yes (Hospitalization, Other)
  Sender: FDA-Public Use
  Company Number: PL-ACCORD-219712

PATIENT
  Age: 54 Year
  Sex: Female

DRUGS (6)
  1. AMLODIPINE [Interacting]
     Active Substance: AMLODIPINE BESYLATE
     Indication: Hypertension
     Dosage: 10 MG, PER DAY
  2. ATORVASTATIN [Interacting]
     Active Substance: ATORVASTATIN
     Indication: Dyslipidaemia
     Dosage: 40 MG, PER DAY
  3. RISPERIDONE [Interacting]
     Active Substance: RISPERIDONE
     Indication: Schizophrenia
     Dosage: 4 MG/24 H
  4. NEBIVOLOL [Interacting]
     Active Substance: NEBIVOLOL
     Indication: Hypertension
     Dosage: 5 MG, PER DAY
  5. CELECOXIB [Interacting]
     Active Substance: CELECOXIB
     Indication: Back pain
     Dosage: 200 MILLIGRAM, QD
  6. PERINDOPRIL [Interacting]
     Active Substance: PERINDOPRIL
     Indication: Hypotension

REACTIONS (3)
  - Drug interaction [Unknown]
  - Swollen tongue [Recovered/Resolved]
  - Angioedema [Unknown]
